FAERS Safety Report 14882771 (Version 1)
Quarter: 2018Q2

REPORT INFORMATION
  Report Type: Spontaneous
  Country: EE (occurrence: EE)
  Receive Date: 20180511
  Receipt Date: 20180511
  Transmission Date: 20180711
  Serious: Yes (Other)
  Sender: FDA-Public Use
  Company Number: EE-TEVA-2018-EE-892270

PATIENT
  Age: 7 Decade
  Sex: Male

DRUGS (1)
  1. AMLODIPINE TEVA 10 MG TABLETT [Suspect]
     Active Substance: AMLODIPINE BESYLATE
     Route: 065

REACTIONS (1)
  - Arrhythmia [Unknown]
